FAERS Safety Report 24099530 (Version 1)
Quarter: 2024Q3

REPORT INFORMATION
  Report Type: Spontaneous
  Country: US (occurrence: US)
  Receive Date: 20240716
  Receipt Date: 20240716
  Transmission Date: 20241017
  Serious: No
  Sender: ROCHE
  Company Number: US-ROCHE-3517794

PATIENT
  Age: 74 Year
  Sex: Female

DRUGS (4)
  1. ESBRIET [Suspect]
     Active Substance: PIRFENIDONE
     Indication: Interstitial lung disease
     Dosage: STRENGTH : 267 MG
     Route: 048
     Dates: start: 202201
  2. ESBRIET [Suspect]
     Active Substance: PIRFENIDONE
     Indication: Idiopathic pulmonary fibrosis
  3. TYVASO DPI [Concomitant]
     Active Substance: TREPROSTINIL
     Dosage: TYVASO DPI MAINT KIT PWD, 64 MCG EVERY 4 HRS AND ONLY GETS 3 TREATMENT ODNE DAILY
  4. ADEMPAS [Concomitant]
     Active Substance: RIOCIGUAT

REACTIONS (6)
  - Dyspnoea [Unknown]
  - Dizziness [Unknown]
  - Ear pain [Unknown]
  - Fatigue [Unknown]
  - Chest pain [Unknown]
  - Rosacea [Unknown]
